FAERS Safety Report 10441576 (Version 1)
Quarter: 2014Q3

REPORT INFORMATION
  Report Type: Spontaneous
  Country: NO (occurrence: NO)
  Receive Date: 20140909
  Receipt Date: 20140909
  Transmission Date: 20150326
  Serious: Yes (Other)
  Sender: FDA-Public Use
  Company Number: NO-ACTAVIS-2014-19501

PATIENT
  Age: 74 Year
  Sex: Male

DRUGS (1)
  1. TRAMADOL ACTAVIS [Suspect]
     Active Substance: TRAMADOL
     Indication: PRODUCT USED FOR UNKNOWN INDICATION
     Dosage: UNK
     Route: 048

REACTIONS (4)
  - Anxiety [Recovered/Resolved]
  - Depressed mood [Recovered/Resolved]
  - Sweat gland disorder [Recovered/Resolved]
  - Product substitution issue [Recovered/Resolved]
